FAERS Safety Report 5885150-5 (Version None)
Quarter: 2008Q3

REPORT INFORMATION
  Report Type: 
  Country: None (occurrence: None)
  Receive Date: 20080916
  Receipt Date: 20080911
  Transmission Date: 20090109
  Serious: Yes (Hospitalization)
  Sender: FDA-Public Use
  Company Number: FR-WYE-G02145808

PATIENT
  Sex: Female

DRUGS (4)
  1. RHINADVIL [Suspect]
     Dosage: UNKNOWN
     Route: 048
     Dates: start: 20080328, end: 20080402
  2. LANTUS [Concomitant]
     Indication: TYPE 1 DIABETES MELLITUS
     Route: 058
  3. ACTRAPID INSULIN NOVO [Concomitant]
     Indication: TYPE 1 DIABETES MELLITUS
     Route: 058
  4. AUGMENTIN '125' [Suspect]
     Dosage: UNKNOWN
     Route: 048
     Dates: start: 20080328, end: 20080402

REACTIONS (6)
  - ALANINE AMINOTRANSFERASE INCREASED [None]
  - ASPARTATE AMINOTRANSFERASE INCREASED [None]
  - BLOOD ALKALINE PHOSPHATASE INCREASED [None]
  - GAMMA-GLUTAMYLTRANSFERASE INCREASED [None]
  - HYPERTRIGLYCERIDAEMIA [None]
  - PANCREATITIS ACUTE [None]
